FAERS Safety Report 8321345-9 (Version None)
Quarter: 2012Q2

REPORT INFORMATION
  Report Type: 
  Country: None (occurrence: None)
  Receive Date: 20120430
  Receipt Date: 20120420
  Transmission Date: 20120825
  Serious: Yes (Other)
  Sender: FDA-Public Use
  Company Number: US-ACTELION-A-US2012-60307

PATIENT

DRUGS (6)
  1. REVATIO [Concomitant]
  2. TRACLEER [Suspect]
     Indication: PULMONARY ARTERIAL HYPERTENSION
     Dosage: UNK
     Route: 048
     Dates: start: 20050120
  3. VENTAVIS [Suspect]
     Indication: PULMONARY ARTERIAL HYPERTENSION
     Dosage: UNK ?G, UNK
     Route: 055
     Dates: start: 20120116, end: 20120120
  4. OXYGEN [Concomitant]
  5. DIGOXIN [Concomitant]
  6. ASPIRIN [Concomitant]

REACTIONS (6)
  - NASOPHARYNGITIS [None]
  - DYSPNOEA [None]
  - HEADACHE [None]
  - NASAL CONGESTION [None]
  - INCREASED UPPER AIRWAY SECRETION [None]
  - DIZZINESS [None]
